FAERS Safety Report 20714454 (Version 4)
Quarter: 2022Q2

REPORT INFORMATION
  Report Type: Spontaneous
  Country: IE (occurrence: IE)
  Receive Date: 20220415
  Receipt Date: 20220603
  Transmission Date: 20220721
  Serious: Yes (Life-Threatening, Hospitalization, Disabling, Other)
  Sender: FDA-Public Use
  Company Number: None

PATIENT
  Age: 14 Year
  Sex: Female

DRUGS (41)
  1. ARIPIPRAZOLE [Interacting]
     Active Substance: ARIPIPRAZOLE
     Indication: Autism spectrum disorder
     Dosage: 5 MILLIGRAM,ONE TABLET TWICE DAILY AND HALF AT NIGHT
     Dates: start: 20191109
  2. ARIPIPRAZOLE [Interacting]
     Active Substance: ARIPIPRAZOLE
     Dosage: 7.5 MILLIGRAM
     Route: 048
     Dates: start: 20190717
  3. ARIPIPRAZOLE [Interacting]
     Active Substance: ARIPIPRAZOLE
     Dosage: UNK
     Dates: start: 20200131, end: 20200519
  4. DIAZEPAM [Suspect]
     Active Substance: DIAZEPAM
     Indication: Depressed mood
     Dosage: 2 MILLIGRAM,2MG UP TO 3 TIMES DAILY, PRN- NEARLY EVERY SCHOOL DAY
     Route: 048
     Dates: start: 20191119, end: 20200115
  5. DIAZEPAM [Suspect]
     Active Substance: DIAZEPAM
     Indication: Anxiety
  6. PROZAC [Suspect]
     Active Substance: FLUOXETINE HYDROCHLORIDE
     Indication: Anxiety
     Dosage: 20 MILLIGRAM, QD
     Dates: start: 20191119
  7. PROZAC [Suspect]
     Active Substance: FLUOXETINE HYDROCHLORIDE
     Dosage: 20 MILLIGRAM, AM (TWO IN THE MORNING)
     Dates: start: 20200227, end: 20210828
  8. PROZAC [Suspect]
     Active Substance: FLUOXETINE HYDROCHLORIDE
     Indication: Anxiety
     Dosage: 10 MILLIGRAM, AM (2.5ML (10MG) IN THE MORNING)
     Route: 048
     Dates: start: 20191109
  9. PROZAC [Suspect]
     Active Substance: FLUOXETINE HYDROCHLORIDE
     Dosage: 30 MILLIGRAM, AM (7.5ML (30MG) IN THE MORNING)
     Dates: start: 20191122
  10. FLUOXETINE HYDROCHLORIDE [Suspect]
     Active Substance: FLUOXETINE HYDROCHLORIDE
     Indication: Anxiety
     Dosage: 20 MILLIGRAM, AM (TWO CAPSULES IN THE MORNING)
     Dates: start: 20200905
  11. FLUOXETINE HYDROCHLORIDE [Suspect]
     Active Substance: FLUOXETINE HYDROCHLORIDE
     Dosage: 20 MILLIGRAM, QD
     Dates: start: 20201101, end: 20210828
  12. FLUOXETINE HYDROCHLORIDE [Suspect]
     Active Substance: FLUOXETINE HYDROCHLORIDE
     Indication: Anxiety
     Dosage: 20 MILLIGRAM, AM, (TWO CAPSULES IN THE MORNING)
     Dates: start: 20200519
  13. RIVOTRIL [Concomitant]
     Active Substance: CLONAZEPAM
     Indication: Anxiety
     Dosage: 0.5 MILLIGRAM, BID
     Dates: start: 20200622
  14. RIVOTRIL [Concomitant]
     Active Substance: CLONAZEPAM
     Dosage: 0.5 MILLIGRAM, BID
     Route: 048
     Dates: start: 20200620, end: 20200627
  15. DROSPIRENONE [Concomitant]
     Active Substance: DROSPIRENONE
     Dosage: UNK UNK, QD
     Dates: start: 20201030
  16. MELATONIN [Concomitant]
     Active Substance: MELATONIN
     Dosage: ONE OR TWO TO BE TAKEN AT NIGHT
     Dates: start: 20200324
  17. MELATONIN [Concomitant]
     Active Substance: MELATONIN
     Dosage: 4 MG, QD,CIRCADIN/MELATONIN ULM: 2 (2MG) CAPSULES AT NIGHT
     Route: 048
     Dates: start: 20191109
  18. MELATONIN [Concomitant]
     Active Substance: MELATONIN
     Dosage: 2 MILLIGRAM, QD,CIRCADIN/MELATONIN: AT NIGHT
     Route: 048
     Dates: start: 20191217
  19. RITALIN [Concomitant]
     Active Substance: METHYLPHENIDATE HYDROCHLORIDE
     Dosage: 10 MILLIGRAM, PM, IN THE EVENING
     Dates: start: 20201009
  20. MEFENAMIC ACID [Concomitant]
     Active Substance: MEFENAMIC ACID
     Dosage: HALF OR ONE TABLET THREE TIMES DAILY
     Route: 048
     Dates: start: 20200616
  21. SERTRALINE BLUEFISH [Concomitant]
     Dosage: 50 MILLIGRAM, QD,INCREASING DOSE
     Route: 048
     Dates: start: 20191109, end: 20191119
  22. ARIPIPRAZOLE [Concomitant]
     Active Substance: ARIPIPRAZOLE
     Indication: Autism spectrum disorder
     Dosage: 5 MILLIGRAM,ONE TABLET TWICE DAILY AND HALF AT NIGHT
     Dates: start: 20191109
  23. ARIPIPRAZOLE [Concomitant]
     Active Substance: ARIPIPRAZOLE
     Dosage: 7.5 MILLIGRAM
     Route: 048
     Dates: start: 20190717
  24. ARIPIPRAZOLE [Concomitant]
     Active Substance: ARIPIPRAZOLE
     Dosage: UNK
     Dates: start: 20200131, end: 20200519
  25. LISDEXAMFETAMINE DIMESYLATE [Concomitant]
     Active Substance: LISDEXAMFETAMINE DIMESYLATE
     Dosage: UNK UNK, AM,IN THE MORNING
     Dates: start: 20200623
  26. LISDEXAMFETAMINE DIMESYLATE [Concomitant]
     Active Substance: LISDEXAMFETAMINE DIMESYLATE
     Dosage: UNK UNK, AM, IN THE MORNING
     Dates: start: 20200722
  27. LISDEXAMFETAMINE DIMESYLATE [Concomitant]
     Active Substance: LISDEXAMFETAMINE DIMESYLATE
     Dosage: UNK UNK, AM IN THE MORNING
     Dates: start: 20201109
  28. LISDEXAMFETAMINE DIMESYLATE [Concomitant]
     Active Substance: LISDEXAMFETAMINE DIMESYLATE
     Dosage: UNK UNK, AM,IN THE MORNING
     Dates: start: 20200710
  29. LISDEXAMFETAMINE DIMESYLATE [Concomitant]
     Active Substance: LISDEXAMFETAMINE DIMESYLATE
     Dosage: UNK
     Dates: start: 20210401
  30. ALTAVITA D3 [Concomitant]
     Dosage: 25000 INTERNATIONAL UNIT,EVERY TWO WEEKS THEN ONCE PER MONTH
     Dates: start: 20191204
  31. ALTAVITA D3 [Concomitant]
     Dosage: 25000 INTERNATIONAL UNIT, Q2W,EVERY TWO WEEKS
     Dates: start: 20200224
  32. ALTAVITA D3 [Concomitant]
     Dosage: 25000 INTERNATIONAL UNIT, MONTHLY,ONE PER MONTH
     Dates: start: 20200131
  33. CLOTRIMAZOLE\HYDROCORTISONE [Concomitant]
     Active Substance: CLOTRIMAZOLE\HYDROCORTISONE
     Dosage: UNK UNK, Q8H, THREE TIMES DAILY (1% W/W)
     Dates: start: 20201126
  34. CLOTRIMAZOLE\HYDROCORTISONE [Concomitant]
     Active Substance: CLOTRIMAZOLE\HYDROCORTISONE
     Dosage: UNK
     Dates: start: 20201030
  35. OLANZAPINE [Concomitant]
     Active Substance: OLANZAPINE
     Dosage: 2.5MG IN THE MORNING, 5 MG AT 5PM
     Route: 048
     Dates: start: 20200630
  36. CONCERTA [Concomitant]
     Active Substance: METHYLPHENIDATE HYDROCHLORIDE
     Dosage: 36 MILLIGRAM, AM,IN THE MORNING
     Dates: start: 20200602
  37. CONCERTA [Concomitant]
     Active Substance: METHYLPHENIDATE HYDROCHLORIDE
     Dosage: 36 MILLIGRAM, AM,IN THE MORNING
     Dates: start: 20200228
  38. CONCERTA [Concomitant]
     Active Substance: METHYLPHENIDATE HYDROCHLORIDE
     Dosage: 18 MILLIGRAM, AM,IN THE MORNING
     Dates: start: 20200124
  39. CONCERTA [Concomitant]
     Active Substance: METHYLPHENIDATE HYDROCHLORIDE
     Dosage: 27 MILLIGRAM, AM,IN THE MORNING
     Dates: start: 20200316
  40. CONCERTA [Concomitant]
     Active Substance: METHYLPHENIDATE HYDROCHLORIDE
     Dosage: 27 MILLIGRAM, QD
     Dates: start: 20200616
  41. MEFENAMIC ACID [Concomitant]
     Active Substance: MEFENAMIC ACID
     Dosage: UNK
     Dates: start: 20200114

REACTIONS (15)
  - Judgement impaired [Not Recovered/Not Resolved]
  - Scar [Not Recovered/Not Resolved]
  - Intentional self-injury [Recovered/Resolved]
  - Body dysmorphic disorder [Recovered/Resolved]
  - Weight increased [Recovered/Resolved]
  - Personality change [Recovered/Resolved]
  - Theft [Recovered/Resolved]
  - Hypersexuality [Recovered/Resolved]
  - Hyperphagia [Recovered/Resolved]
  - Impulse-control disorder [Recovered/Resolved]
  - Drug interaction [Unknown]
  - Social anxiety disorder [Recovering/Resolving]
  - Oropharyngeal pain [Recovered/Resolved]
  - Agitation [Recovered/Resolved]
  - Suicidal ideation [Recovered/Resolved]

NARRATIVE: CASE EVENT DATE: 20190901
